FAERS Safety Report 23981025 (Version 1)
Quarter: 2024Q2

REPORT INFORMATION
  Report Type: Spontaneous
  Country: IN (occurrence: IN)
  Receive Date: 20240617
  Receipt Date: 20240617
  Transmission Date: 20240715
  Serious: Yes (Other)
  Sender: FDA-Public Use
  Company Number: IN-ALEMBIC PHARMACUETICALS LIMITED-2024SCAL000839

PATIENT

DRUGS (1)
  1. ITRACONAZOLE [Suspect]
     Active Substance: ITRACONAZOLE
     Indication: Aspergillus infection
     Dosage: 100 MG, BID
     Route: 065

REACTIONS (2)
  - Rhabdomyolysis [Unknown]
  - Acute kidney injury [Unknown]
